FAERS Safety Report 6507769-0 (Version None)
Quarter: 2009Q4

REPORT INFORMATION
  Report Type: 
  Country: None (occurrence: None)
  Receive Date: 20091201
  Receipt Date: 20090810
  Transmission Date: 20100525
  Serious: Yes (Other)
  Sender: FDA-Public Use
  Company Number: 2009-196995-NL

PATIENT
  Age: 41 Year
  Sex: Female
  Weight: 110.2241 kg

DRUGS (3)
  1. NUVARING [Suspect]
     Indication: CONTRACEPTION
     Dosage: 1 DF;VAG
     Route: 067
     Dates: start: 20040628, end: 20040820
  2. LOVENOX [Suspect]
     Indication: DEEP VEIN THROMBOSIS
     Dosage: 150 MG;QD;SC ; 100 MG;BID;SC
     Route: 058
     Dates: start: 20040820, end: 20040823
  3. LOVENOX [Suspect]
     Indication: DEEP VEIN THROMBOSIS
     Dosage: 150 MG;QD;SC ; 100 MG;BID;SC
     Route: 058
     Dates: start: 20040823

REACTIONS (7)
  - CONTUSION [None]
  - DEEP VEIN THROMBOSIS [None]
  - HEADACHE [None]
  - INJECTION SITE REACTION [None]
  - NAUSEA [None]
  - PYREXIA [None]
  - WEIGHT INCREASED [None]
